FAERS Safety Report 8433564-1 (Version None)
Quarter: 2012Q2

REPORT INFORMATION
  Report Type: 
  Country: None (occurrence: None)
  Receive Date: 20120613
  Receipt Date: 20120531
  Transmission Date: 20120825
  Serious: Yes (Other)
  Sender: FDA-Public Use
  Company Number: US-PFIZER INC-2012134893

PATIENT
  Sex: Male
  Weight: 122.02 kg

DRUGS (4)
  1. IBUPROFEN [Suspect]
     Dosage: UNK
  2. NAPROXEN (ALEVE) [Suspect]
     Dosage: UNK
     Route: 065
  3. DURAGESIC-100 [Concomitant]
     Indication: PAIN
     Dosage: UNK
     Route: 062
     Dates: start: 20110101
  4. PROZAC [Concomitant]
     Indication: ANXIETY
     Dosage: 40MG,1X/DAY
     Route: 048

REACTIONS (1)
  - GASTROINTESTINAL HAEMORRHAGE [None]
